FAERS Safety Report 5988579-X (Version None)
Quarter: 2008Q4

REPORT INFORMATION
  Report Type: 
  Country: None (occurrence: None)
  Receive Date: 20081210
  Receipt Date: 20081201
  Transmission Date: 20090506
  Serious: Yes (Hospitalization)
  Sender: FDA-Public Use
  Company Number: BR-ROCHE-600311

PATIENT
  Age: 31 Year
  Sex: Female

DRUGS (3)
  1. MYCOPHENOLATE MOFETIL [Suspect]
     Dosage: OTHER INDICATION: ANTIPHOSPHOLIPID SYNDROME
     Route: 065
  2. MABTHERA [Suspect]
     Indication: SYSTEMIC LUPUS ERYTHEMATOSUS
     Dosage: OTHER INDICATION: ANTIPHOSPHOLIPID SYNDROME (APS)
     Route: 042
     Dates: start: 20081101
  3. COUMADIN [Concomitant]

REACTIONS (5)
  - DRUG INEFFECTIVE [None]
  - GENERALISED OEDEMA [None]
  - THROMBOCYTOPENIA [None]
  - VASCULITIS [None]
  - VENA CAVA THROMBOSIS [None]
